FAERS Safety Report 7588459-2 (Version None)
Quarter: 2011Q3

REPORT INFORMATION
  Report Type: 
  Country: None (occurrence: None)
  Receive Date: 20110705
  Receipt Date: 20110620
  Transmission Date: 20111222
  Serious: Yes (Hospitalization, Other)
  Sender: FDA-Public Use
  Company Number: US-BAYER-2011-001154

PATIENT
  Age: 43 Year
  Sex: Female
  Weight: 58.957 kg

DRUGS (7)
  1. DROSPIRENONE AND ETHINYL ESTRADIOL [Suspect]
     Indication: PRODUCT USED FOR UNKNOWN INDICATION
     Dosage: UNK
     Dates: start: 20070101, end: 20091101
  2. YASMIN [Suspect]
     Indication: PRODUCT USED FOR UNKNOWN INDICATION
     Dosage: UNK
     Dates: start: 20050101, end: 20091101
  3. YASMIN [Suspect]
     Dosage: UNK
     Dates: start: 20061201, end: 20080701
  4. DROSPIRENONE AND ETHINYL ESTRADIOL [Suspect]
     Dosage: UNK
     Dates: start: 20080701, end: 20091001
  5. MOTRIN [Concomitant]
  6. ZITHROMAX [Concomitant]
     Indication: SINUSITIS
     Dosage: UNK
  7. NATURE MADE MULITIVITAMIN [Concomitant]
     Dosage: UNK UNK, QD
     Dates: start: 19900101

REACTIONS (7)
  - CHOLELITHIASIS [None]
  - CHOLECYSTITIS CHRONIC [None]
  - GALLBLADDER DISORDER [None]
  - NAUSEA [None]
  - GALLBLADDER INJURY [None]
  - PANCREATITIS [None]
  - ABDOMINAL PAIN [None]
